FAERS Safety Report 15749134 (Version 2)
Quarter: 2019Q1

REPORT INFORMATION
  Report Type: Spontaneous
  Country: DE (occurrence: DE)
  Receive Date: 20181221
  Receipt Date: 20190109
  Transmission Date: 20190417
  Serious: Yes (Other)
  Sender: FDA-Public Use
  Company Number: PHHY2018DE190671

PATIENT
  Sex: Female
  Weight: 50 kg

DRUGS (16)
  1. DOCETAXEL. [Suspect]
     Active Substance: DOCETAXEL
     Dosage: 70 MG, CYCLIC
     Route: 042
     Dates: start: 20181001
  2. FLUOROURACIL. [Concomitant]
     Active Substance: FLUOROURACIL
     Dosage: 3500 MG, UNK
     Route: 042
     Dates: start: 20181030
  3. OXALIPLATIN. [Concomitant]
     Active Substance: OXALIPLATIN
     Indication: ADENOCARCINOMA GASTRIC
     Dosage: 130 MG, CYCLIC
     Route: 042
     Dates: start: 20180621
  4. ALOXI [Concomitant]
     Active Substance: PALONOSETRON HYDROCHLORIDE
     Dosage: 250 UG, UNK
     Route: 042
     Dates: start: 20181001
  5. ONCOFOLIC [Concomitant]
     Active Substance: FOLATE SODIUM
     Indication: ADENOCARCINOMA GASTRIC
     Dosage: 300 MG, CYCLIC
     Route: 042
     Dates: start: 20180621
  6. DOCETAXEL. [Suspect]
     Active Substance: DOCETAXEL
     Indication: ADENOCARCINOMA GASTRIC
     Dosage: 70 MG, CYCLIC
     Route: 042
     Dates: start: 20180621
  7. FLUOROURACIL. [Concomitant]
     Active Substance: FLUOROURACIL
     Dosage: 3500 MG, UNK
     Route: 042
     Dates: start: 20181001
  8. ALOXI [Concomitant]
     Active Substance: PALONOSETRON HYDROCHLORIDE
     Indication: PROPHYLAXIS
     Dosage: 250 UG, UNK
     Route: 042
  9. ONCOFOLIC [Concomitant]
     Active Substance: FOLATE SODIUM
     Dosage: 300 MG, UNK
     Route: 042
     Dates: start: 20181001
  10. FLUOROURACIL. [Concomitant]
     Active Substance: FLUOROURACIL
     Indication: ADENOCARCINOMA GASTRIC
     Dosage: 3500 MG, CYCLIC
     Route: 042
     Dates: start: 20180621
  11. OXALIPLATIN. [Concomitant]
     Active Substance: OXALIPLATIN
     Dosage: 130 MG, CYCLIC
     Route: 042
     Dates: start: 20181001
  12. OXALIPLATIN. [Concomitant]
     Active Substance: OXALIPLATIN
     Dosage: 130 MG, CYCLIC
     Route: 042
     Dates: start: 20181030
  13. DEXAMETHASONE. [Concomitant]
     Active Substance: DEXAMETHASONE
     Indication: PROPHYLAXIS
     Dosage: 4 MG, UNK
     Route: 042
  14. DOCETAXEL. [Suspect]
     Active Substance: DOCETAXEL
     Dosage: 70 MG, CYCLIC
     Route: 042
     Dates: start: 20181030
  15. DEXAMETHASONE. [Concomitant]
     Active Substance: DEXAMETHASONE
     Dosage: 4 MG, UNK
     Route: 042
     Dates: start: 20181001
  16. ONCOFOLIC [Concomitant]
     Active Substance: FOLATE SODIUM
     Dosage: 300 MG, UNK
     Route: 042
     Dates: start: 20181030

REACTIONS (1)
  - Leukopenia [Recovered/Resolved]

NARRATIVE: CASE EVENT DATE: 20181007
